FAERS Safety Report 9089199 (Version 1)
Quarter: 2013Q1

REPORT INFORMATION
  Report Type: Report from Study
  Country: CA (occurrence: CA)
  Receive Date: 20130201
  Receipt Date: 20130201
  Transmission Date: 20140127
  Serious: Yes (Other)
  Sender: FDA-Public Use
  Company Number: CA-JNJFOC-20130107117

PATIENT
  Sex: Male
  Weight: 105.5 kg

DRUGS (12)
  1. REMICADE [Suspect]
     Indication: PSORIATIC ARTHROPATHY
     Route: 042
     Dates: start: 20061206
  2. REMICADE [Suspect]
     Indication: PSORIATIC ARTHROPATHY
     Dosage: 45TH INFUSION
     Route: 042
     Dates: start: 20121115
  3. METHOTREXATE [Concomitant]
     Indication: PSORIATIC ARTHROPATHY
     Route: 048
  4. LOSEC [Concomitant]
     Route: 065
  5. MODULON [Concomitant]
     Route: 065
  6. FOLIC ACID [Concomitant]
     Route: 065
  7. INDAPAMIDE [Concomitant]
     Indication: HYPERTENSION
     Route: 065
  8. DILTIAZEM [Concomitant]
     Indication: HYPERTENSION
     Route: 065
  9. ALLOPURINOL [Concomitant]
     Indication: GOUT
     Route: 065
  10. COLCHICINE [Concomitant]
     Indication: GOUT
     Route: 065
  11. METFORMIN [Concomitant]
     Indication: TYPE 2 DIABETES MELLITUS
     Route: 065
  12. ALL OTHER THERAPEUTIC AGENTS [Concomitant]
     Route: 065

REACTIONS (1)
  - Cholecystitis [Not Recovered/Not Resolved]
